FAERS Safety Report 19643898 (Version 1)
Quarter: 2021Q3

REPORT INFORMATION
  Report Type: Spontaneous
  Country: CN (occurrence: CN)
  Receive Date: 20210730
  Receipt Date: 20210730
  Transmission Date: 20211014
  Serious: Yes (Hospitalization, Other)
  Sender: FDA-Public Use
  Company Number: CN-BAXTER-2021BAX022501

PATIENT
  Age: 63 Year
  Sex: Female
  Weight: 65 kg

DRUGS (6)
  1. 0.9% SODIUM CHLORIDE INJECTION [Suspect]
     Active Substance: SODIUM CHLORIDE
     Indication: BREAST CANCER
     Dosage: 0.9% SODIUM CHLORIDE INJECTION 100ML + CYCLOPHOSPHAMIDE FOR INJECTION 1000 MG; ST; DAY 1 OF Q14DAYS
     Route: 041
     Dates: start: 20210703, end: 20210703
  2. 5% GLUCOSE  INJECTION [Suspect]
     Active Substance: DEXTROSE
     Indication: BREAST CANCER
     Dosage: 5% GLUCOSE INJECTION 100ML + PIRARUBICIN HYDROCHLORIDE FOR INJECTION 100 MG; ST; DAY 1 IN Q14DAYS
     Route: 041
     Dates: start: 20210703, end: 20210703
  3. PIRARUBICIN HYDROCHLORIDE [Suspect]
     Active Substance: PIRARUBICIN HYDROCHLORIDE
     Indication: BREAST CANCER
     Route: 041
  4. ENDOXAN [Suspect]
     Active Substance: CYCLOPHOSPHAMIDE
     Indication: BREAST CANCER
     Route: 041
  5. PIRARUBICIN HYDROCHLORIDE [Suspect]
     Active Substance: PIRARUBICIN HYDROCHLORIDE
     Dosage: 5% GLUCOSE INJECTION 100ML + PIRARUBICIN HYDROCHLORIDE FOR INJECTION 100 MG; ST; DAY 1 IN Q14DAYS
     Route: 041
     Dates: start: 20210703, end: 20210703
  6. ENDOXAN [Suspect]
     Active Substance: CYCLOPHOSPHAMIDE
     Dosage: 0.9% SODIUM CHLORIDE INJECTION 100ML + CYCLOPHOSPHAMIDE FOR INJECTION 1000 MG; ST; DAY 1 OF Q14DAYS
     Route: 041
     Dates: start: 20210703, end: 20210703

REACTIONS (2)
  - Myelosuppression [Recovered/Resolved]
  - Myelosuppression [Recovered/Resolved]

NARRATIVE: CASE EVENT DATE: 20210716
